FAERS Safety Report 20278805 (Version 1)
Quarter: 2022Q1

REPORT INFORMATION
  Report Type: Spontaneous
  Country: US (occurrence: US)
  Receive Date: 20220103
  Receipt Date: 20220103
  Transmission Date: 20220424
  Serious: Yes (Hospitalization, Other)
  Sender: FDA-Public Use
  Company Number: US-EPICPHARMA-US-2021EPCLIT01325

PATIENT
  Age: 42 Year
  Sex: Male

DRUGS (1)
  1. DIETHYLPROPION HYDROCHLORIDE [Suspect]
     Active Substance: DIETHYLPROPION HYDROCHLORIDE
     Indication: Weight decreased
     Route: 065

REACTIONS (1)
  - Duodenitis [Recovered/Resolved]
